FAERS Safety Report 20706281 (Version 12)
Quarter: 2025Q1

REPORT INFORMATION
  Report Type: Report from Study
  Country: CA (occurrence: CA)
  Receive Date: 20220413
  Receipt Date: 20250118
  Transmission Date: 20250409
  Serious: Yes (Hospitalization, Other)
  Sender: JOHNSON AND JOHNSON
  Company Number: CA-JNJFOC-20220249097

PATIENT
  Age: 44 Year
  Sex: Female
  Weight: 92 kg

DRUGS (12)
  1. REMICADE [Suspect]
     Active Substance: INFLIXIMAB
     Indication: Rheumatoid arthritis
     Dosage: V6:EXPIRY- 31-AUG-2024?V7:EXPIRY- 31-OCT-2024
     Route: 041
     Dates: start: 20010313
  2. REMICADE [Suspect]
     Active Substance: INFLIXIMAB
     Indication: Juvenile idiopathic arthritis
     Route: 041
  3. REMICADE [Suspect]
     Active Substance: INFLIXIMAB
     Route: 041
  4. REMICADE [Suspect]
     Active Substance: INFLIXIMAB
     Route: 041
     Dates: start: 20120124
  5. METHYLPHENIDATE [Concomitant]
     Active Substance: METHYLPHENIDATE
     Indication: Product used for unknown indication
     Route: 065
  6. METHOTREXATE [Concomitant]
     Active Substance: METHOTREXATE
  7. FOLIC ACID [Concomitant]
     Active Substance: FOLIC ACID
  8. NAPROXEN [Concomitant]
     Active Substance: NAPROXEN
  9. CELEBREX [Concomitant]
     Active Substance: CELECOXIB
  10. REXULTI [Concomitant]
     Active Substance: BREXPIPRAZOLE
  11. DILAUDID [Concomitant]
     Active Substance: HYDROMORPHONE HYDROCHLORIDE
  12. ATIVAN [Concomitant]
     Active Substance: LORAZEPAM

REACTIONS (22)
  - Arrhythmia [Recovering/Resolving]
  - Angina pectoris [Unknown]
  - Meniscus injury [Recovered/Resolved]
  - Cholelithiasis [Unknown]
  - Concussion [Recovering/Resolving]
  - Lung perforation [Recovering/Resolving]
  - Rib fracture [Recovering/Resolving]
  - Clavicle fracture [Recovering/Resolving]
  - Road traffic accident [Unknown]
  - Shoulder fracture [Recovering/Resolving]
  - Multiple injuries [Unknown]
  - Bedridden [Unknown]
  - Post-acute COVID-19 syndrome [Recovering/Resolving]
  - Sinusitis [Unknown]
  - Arthralgia [Not Recovered/Not Resolved]
  - COVID-19 [Recovering/Resolving]
  - Tongue discomfort [Unknown]
  - Petechiae [Recovered/Resolved]
  - Antibiotic therapy [Unknown]
  - Musculoskeletal discomfort [Unknown]
  - Erythema [Recovering/Resolving]
  - Eye irritation [Recovering/Resolving]

NARRATIVE: CASE EVENT DATE: 20211115
